FAERS Safety Report 9576721 (Version 1)
Quarter: 2013Q4

REPORT INFORMATION
  Report Type: Spontaneous
  Country: US (occurrence: US)
  Receive Date: 20131001
  Receipt Date: 20131001
  Transmission Date: 20140711
  Serious: No
  Sender: FDA-Public Use
  Company Number: US-AMGEN-USASP2013004422

PATIENT
  Sex: Male

DRUGS (5)
  1. ENBREL [Suspect]
     Indication: PSORIASIS
     Dosage: UNK
  2. CLARITIN                           /00413701/ [Concomitant]
     Dosage: UNK
  3. VITAMIN D                          /00107901/ [Concomitant]
     Dosage: UNK
  4. DIOVAN [Concomitant]
     Dosage: UNK
  5. HUMIRA [Concomitant]
     Dosage: UNK

REACTIONS (1)
  - Drug ineffective [Unknown]
